FAERS Safety Report 4624042-6 (Version None)
Quarter: 2005Q1

REPORT INFORMATION
  Report Type: 
  Country: None (occurrence: None)
  Receive Date: 20050329
  Receipt Date: 20050316
  Transmission Date: 20050727
  Serious: Yes (Death, Other)
  Sender: FDA-Public Use
  Company Number: DE-2005-004206

PATIENT
  Age: 40 Year

DRUGS (8)
  1. FLUDARABINE PHOSPHATE [Suspect]
     Indication: ALLOGENIC BONE MARROW TRANSPLANTATION THERAPY
     Dosage: 90 MG/M2, UNK, INTRAVENOUS
     Route: 042
     Dates: start: 20030101
  2. MELPHALAN [Concomitant]
  3. THALIDOMIDE [Concomitant]
  4. CYCLOPHOSPHAMIDE [Concomitant]
  5. ETOPOSIDE [Concomitant]
  6. DEXAMETHASONE [Concomitant]
  7. CYCLOSPORINE [Concomitant]
  8. MYOCOPHENOLATE MOFETIL [Concomitant]

REACTIONS (7)
  - COMPLICATIONS OF BONE MARROW TRANSPLANT [None]
  - CYTOMEGALOVIRUS INFECTION [None]
  - PYREXIA [None]
  - STEM CELL TRANSPLANT [None]
  - SURGICAL PROCEDURE REPEATED [None]
  - THROMBOTIC MICROANGIOPATHY [None]
  - VIRAL DIARRHOEA [None]
